FAERS Safety Report 4933518-3 (Version None)
Quarter: 2006Q1

REPORT INFORMATION
  Report Type: 
  Country: None (occurrence: None)
  Receive Date: 20060306
  Receipt Date: 20060227
  Transmission Date: 20060701
  Serious: Yes (Death, Hospitalization)
  Sender: FDA-Public Use
  Company Number: CH-SANOFI-SYNTHELABO-F01200600555

PATIENT
  Weight: 53 kg

DRUGS (5)
  1. OXALIPLATIN [Suspect]
     Indication: RECTAL CANCER
     Route: 041
     Dates: start: 20060220, end: 20060220
  2. CAPECITABINE [Suspect]
     Route: 048
  3. RADIOTHERAPY [Suspect]
     Indication: RECTAL CANCER
     Dosage: DOSE NOT SPECIFIED
  4. MOTILIUM [Concomitant]
  5. IMODIUM [Concomitant]

REACTIONS (4)
  - GASTROINTESTINAL HAEMORRHAGE [None]
  - GENERAL PHYSICAL HEALTH DETERIORATION [None]
  - NAUSEA [None]
  - VOMITING [None]
